APPROVED DRUG PRODUCT: DEXTROSE 5% AND POTASSIUM CHLORIDE 0.075%
Active Ingredient: DEXTROSE; POTASSIUM CHLORIDE
Strength: 5GM/100ML;75MG/100ML
Dosage Form/Route: INJECTABLE;INJECTION
Application: A212346 | Product #001 | TE Code: AP
Applicant: FRESENIUS KABI USA LLC
Approved: Sep 10, 2020 | RLD: No | RS: No | Type: RX